FAERS Safety Report 22229765 (Version 1)
Quarter: 2023Q2

REPORT INFORMATION
  Report Type: Spontaneous
  Country: US (occurrence: US)
  Receive Date: 20230419
  Receipt Date: 20230419
  Transmission Date: 20230722
  Serious: No
  Sender: FDA-Public Use
  Company Number: US-ALLERGAN-2302203US

PATIENT
  Age: 77 Year
  Sex: Female

DRUGS (5)
  1. RESTASIS [Suspect]
     Active Substance: CYCLOSPORINE
     Indication: Dry eye
     Dosage: 2 GTT, QD
     Route: 047
     Dates: start: 202301
  2. TRELEGY ELLIPTA [Concomitant]
     Active Substance: FLUTICASONE FUROATE\UMECLIDINIUM BROMIDE\VILANTEROL TRIFENATATE
     Indication: Asthma
  3. VYZULTA [Concomitant]
     Active Substance: LATANOPROSTENE BUNOD
     Indication: Glaucoma
     Dosage: 1 GTT, QD
     Route: 047
  4. DORZOLAMIDE [Concomitant]
     Active Substance: DORZOLAMIDE
     Indication: Glaucoma
  5. BRIMONIDINE [Concomitant]
     Active Substance: BRIMONIDINE TARTRATE
     Indication: Glaucoma

REACTIONS (3)
  - Pharyngeal paraesthesia [Unknown]
  - Incorrect dose administered by device [Unknown]
  - Product delivery mechanism issue [Not Recovered/Not Resolved]

NARRATIVE: CASE EVENT DATE: 20230101
